FAERS Safety Report 15134928 (Version 2)
Quarter: 2018Q3

REPORT INFORMATION
  Report Type: Report from Study
  Country: US (occurrence: US)
  Receive Date: 20180712
  Receipt Date: 20180717
  Transmission Date: 20181010
  Serious: No
  Sender: FDA-Public Use
  Company Number: US-ROCHE-2152630

PATIENT
  Sex: Female
  Weight: 34.9 kg

DRUGS (3)
  1. NUTROPIN AQ [Suspect]
     Active Substance: SOMATROPIN
     Indication: GROWTH HORMONE DEFICIENCY
     Dosage: 6 INJECTIONS/WEEK
     Route: 058
  2. PERIACTIN [Concomitant]
     Active Substance: CYPROHEPTADINE HYDROCHLORIDE
     Dosage: AT BEDTIME
     Route: 048
  3. PENTASA [Concomitant]
     Active Substance: MESALAMINE
     Route: 048

REACTIONS (1)
  - No adverse event [Unknown]
